FAERS Safety Report 23203623 (Version 2)
Quarter: 2023Q4

REPORT INFORMATION
  Report Type: Spontaneous
  Country: US (occurrence: US)
  Receive Date: 20231120
  Receipt Date: 20231120
  Transmission Date: 20240110
  Serious: No
  Sender: FDA-Public Use
  Company Number: US-DSJP-DSJ-2023-146653

PATIENT
  Age: 76 Year
  Sex: Male

DRUGS (76)
  1. EDOXABAN [Interacting]
     Active Substance: EDOXABAN
     Indication: Anticoagulant therapy
     Dosage: 60 MG DAILY (AFTER 10 DAYS OF THERAPY)
     Route: 048
     Dates: start: 20220319, end: 20220605
  2. EDOXABAN [Interacting]
     Active Substance: EDOXABAN
     Dosage: 60 MG DAILY (AFTER 10 DAYS OF THERAPY)
     Route: 048
     Dates: start: 20220512
  3. RIFAMPIN [Interacting]
     Active Substance: RIFAMPIN
     Indication: Tuberculosis
     Dosage: 600 MG DAILY
     Route: 048
     Dates: start: 20220301, end: 20220309
  4. RIFABUTIN [Interacting]
     Active Substance: RIFABUTIN
     Indication: Tuberculosis
     Dosage: 300 MG DAILY
     Route: 048
     Dates: start: 20220310, end: 20220407
  5. RIFABUTIN [Interacting]
     Active Substance: RIFABUTIN
     Dosage: 450 MG DAILY
     Route: 048
     Dates: start: 20220408, end: 20220617
  6. RIFABUTIN [Interacting]
     Active Substance: RIFABUTIN
     Dosage: 600 MG DAILY
     Route: 048
     Dates: start: 20220618, end: 20220721
  7. APIXABAN [Interacting]
     Active Substance: APIXABAN
     Indication: Anticoagulant therapy
     Dosage: 5 MG, BID
     Route: 048
     Dates: start: 20220225, end: 20220319
  8. CEFTRIAXONE [Concomitant]
     Active Substance: CEFTRIAXONE\CEFTRIAXONE SODIUM
     Indication: Pneumonia
     Dosage: UNK
     Route: 065
  9. AZITHROMYCIN [Concomitant]
     Active Substance: AZITHROMYCIN
     Indication: Pneumonia
     Dosage: 500 MG DAILY
     Route: 048
     Dates: start: 20220301, end: 20220303
  10. CEFEPIME [Concomitant]
     Active Substance: CEFEPIME HYDROCHLORIDE
     Indication: Pneumonia bacterial
     Dosage: 2 G, ONCE EVERY 12HR
     Route: 042
     Dates: start: 20220225, end: 20220301
  11. CEFEPIME [Concomitant]
     Active Substance: CEFEPIME HYDROCHLORIDE
     Dosage: 2 G, ONCE EVERY 12HR
     Route: 042
     Dates: start: 20220512, end: 20220518
  12. DOXYCYCLINE [Concomitant]
     Active Substance: DOXYCYCLINE
     Indication: Pneumonia bacterial
     Dosage: UNK
     Route: 065
  13. ASPIRIN [Concomitant]
     Active Substance: ASPIRIN
     Indication: Product used for unknown indication
     Dosage: 81 MG DAILY
     Route: 048
     Dates: start: 20220225, end: 20220308
  14. DILTIAZEM [Concomitant]
     Active Substance: DILTIAZEM
     Indication: Product used for unknown indication
     Dosage: 180 MG DAILY
     Route: 048
     Dates: start: 20220225, end: 20220303
  15. DILTIAZEM [Concomitant]
     Active Substance: DILTIAZEM
     Dosage: 240 MG DAILY
     Route: 048
     Dates: start: 20220304, end: 20220308
  16. BUDESONIDE [Concomitant]
     Active Substance: BUDESONIDE
     Indication: Product used for unknown indication
     Dosage: 0.5 MG, BID
     Route: 065
     Dates: start: 20220225, end: 20220421
  17. FORMOTEROL [Concomitant]
     Active Substance: FORMOTEROL
     Indication: Product used for unknown indication
     Dosage: UNK
     Route: 065
  18. ALBUTEROL\IPRATROPIUM [Concomitant]
     Active Substance: ALBUTEROL\IPRATROPIUM
     Indication: Product used for unknown indication
     Dosage: 0.5 MG-2.5MG , ONCE EVERY 6HR
     Route: 065
     Dates: start: 20220225, end: 20220305
  19. ALBUTEROL\IPRATROPIUM [Concomitant]
     Active Substance: ALBUTEROL\IPRATROPIUM
     Dosage: 0.5 MG-2.5MG , ONCE EVERY 6HR
     Route: 065
     Dates: start: 20220421, end: 20220510
  20. ALBUTEROL\IPRATROPIUM [Concomitant]
     Active Substance: ALBUTEROL\IPRATROPIUM
     Dosage: 0.5 MG-2.5MG, ONCE EVERY 12HR
     Route: 065
     Dates: start: 20220510, end: 20220721
  21. ALBUTEROL\IPRATROPIUM [Concomitant]
     Active Substance: ALBUTEROL\IPRATROPIUM
     Dosage: .5 MG-2.5 MG EVERY 6 HOURS AS NEEDED
     Route: 065
     Dates: start: 20220225, end: 20220607
  22. ROFLUMILAST [Concomitant]
     Active Substance: ROFLUMILAST
     Indication: Product used for unknown indication
     Dosage: 500 MG DAILY
     Route: 048
     Dates: start: 20220228, end: 20220721
  23. PANTOPRAZOLE [Concomitant]
     Active Substance: PANTOPRAZOLE
     Indication: Product used for unknown indication
     Dosage: 40 MG DAILY
     Route: 048
     Dates: start: 20220226, end: 20220526
  24. PANTOPRAZOLE [Concomitant]
     Active Substance: PANTOPRAZOLE
     Dosage: 40 MG DAILY
     Route: 048
     Dates: start: 20220623, end: 20220704
  25. ETHAMBUTOL [Concomitant]
     Active Substance: ETHAMBUTOL HYDROCHLORIDE
     Indication: Tuberculosis
     Dosage: 1200 MG, DAILY
     Route: 048
     Dates: start: 20220301, end: 20220721
  26. ISONIAZID [Concomitant]
     Active Substance: ISONIAZID
     Indication: Tuberculosis
     Dosage: 300 MG, DAILY
     Route: 048
     Dates: start: 20220301, end: 20220721
  27. PYRAZINAMIDE [Concomitant]
     Active Substance: PYRAZINAMIDE
     Indication: Tuberculosis
     Dosage: 1500 MG DAILY
     Route: 048
     Dates: start: 20220301, end: 20220721
  28. LINACLOTIDE [Concomitant]
     Active Substance: LINACLOTIDE
     Indication: Product used for unknown indication
     Dosage: UNK
     Route: 065
  29. ACETAMINOPHEN\HYDROCODONE [Concomitant]
     Active Substance: ACETAMINOPHEN\HYDROCODONE
     Indication: Product used for unknown indication
     Dosage: 5 ? 325 MG EVERY 6 HOURS AS NEEDED
     Route: 048
     Dates: start: 20220320, end: 20220721
  30. ONDANSETRON [Concomitant]
     Active Substance: ONDANSETRON
     Indication: Product used for unknown indication
     Dosage: 4 MG EVERY 8 HOURS AS NEEDED
     Route: 042
     Dates: start: 20220316, end: 20220614
  31. ONDANSETRON [Concomitant]
     Active Substance: ONDANSETRON
     Dosage: 4 MG EVERY 8 HOURS AS NEEDED
     Route: 042
     Dates: start: 20220629, end: 20220721
  32. MIDODRINE [Concomitant]
     Active Substance: MIDODRINE
     Indication: Product used for unknown indication
     Dosage: 2.5 MG, BID
     Route: 048
     Dates: start: 20220225, end: 20220310
  33. VITAMINS NOS [Concomitant]
     Active Substance: VITAMINS
     Indication: Product used for unknown indication
     Dosage: UNK
     Route: 065
  34. POTASSIUM CHLORIDE [Concomitant]
     Active Substance: POTASSIUM CHLORIDE
     Indication: Product used for unknown indication
     Dosage: UNK
     Route: 065
  35. ENOXAPARIN [Concomitant]
     Active Substance: ENOXAPARIN
     Indication: Product used for unknown indication
     Dosage: 50 MG, BID
     Route: 058
     Dates: start: 20220605, end: 20220620
  36. CEFDINIR [Concomitant]
     Active Substance: CEFDINIR
     Indication: Pneumonia
     Dosage: UNK
     Route: 065
  37. BISACODYL [Concomitant]
     Active Substance: BISACODYL
     Indication: Product used for unknown indication
     Dosage: 10 MG, SINGLE
     Route: 054
     Dates: start: 20220228
  38. CAPSAICIN [Concomitant]
     Active Substance: CAPSAICIN
     Indication: Product used for unknown indication
     Dosage: APPLY CREAM THREE TIMES DAILY
     Route: 061
     Dates: start: 20220603, end: 20220721
  39. DOCUSATE [Concomitant]
     Active Substance: DOCUSATE
     Indication: Product used for unknown indication
     Dosage: 100 MG DAILY
     Route: 048
     Dates: start: 20220225, end: 20220309
  40. FAMOTIDINE [Concomitant]
     Active Substance: FAMOTIDINE
     Indication: Product used for unknown indication
     Dosage: 20 MG, BID
     Route: 048
     Dates: start: 20220329, end: 20220406
  41. FERROUS SULFATE [FERROUS SULFATE HEPTAHYDRATE] [Concomitant]
     Indication: Product used for unknown indication
     Dosage: 325 MG, QOD
     Route: 048
     Dates: start: 20220225, end: 20220522
  42. GUAIFENESIN [Concomitant]
     Active Substance: GUAIFENESIN
     Indication: Product used for unknown indication
     Dosage: 400 MG, BID
     Route: 048
     Dates: start: 20220404, end: 20220410
  43. LACTATED RINGERS SOLUTION [Concomitant]
     Active Substance: CALCIUM CHLORIDE\POTASSIUM CHLORIDE\SODIUM CHLORIDE\SODIUM LACTATE
     Indication: Product used for unknown indication
     Dosage: 1000 MG ONE-TIME BOLUS
     Route: 042
     Dates: start: 20220307
  44. LACTATED RINGERS SOLUTION [Concomitant]
     Active Substance: CALCIUM CHLORIDE\POTASSIUM CHLORIDE\SODIUM CHLORIDE\SODIUM LACTATE
     Dosage: 100 ML/HR
     Route: 042
     Dates: start: 20220306, end: 20220308
  45. LIDOCAINE [Concomitant]
     Active Substance: LIDOCAINE
     Indication: Product used for unknown indication
     Dosage: APPLY PATCH DAILY
     Route: 061
     Dates: start: 20220401, end: 20220608
  46. LIDOCAINE [Concomitant]
     Active Substance: LIDOCAINE
     Dosage: APPLY PATCH DAILY
     Route: 061
     Dates: start: 20220617, end: 20220620
  47. MELATONIN [Concomitant]
     Active Substance: MELATONIN
     Indication: Product used for unknown indication
     Dosage: 10 MG, EVERY EVENING
     Route: 048
     Dates: start: 20220516, end: 20220521
  48. METOPROLOL SUCCINATE [Concomitant]
     Active Substance: METOPROLOL SUCCINATE
     Indication: Product used for unknown indication
     Dosage: 100 MG DAILY
     Route: 048
     Dates: start: 20220308, end: 20220401
  49. METOPROLOL SUCCINATE [Concomitant]
     Active Substance: METOPROLOL SUCCINATE
     Dosage: 50 MG DAILY
     Route: 048
     Dates: start: 20220401, end: 20220512
  50. METOPROLOL SUCCINATE [Concomitant]
     Active Substance: METOPROLOL SUCCINATE
     Dosage: 25 MG DAILY
     Route: 048
     Dates: start: 20220606, end: 20220608
  51. METOPROLOL SUCCINATE [Concomitant]
     Active Substance: METOPROLOL SUCCINATE
     Dosage: 12.5 MG DAILY
     Route: 048
     Dates: start: 20220608, end: 20220721
  52. MINERAL OIL [Concomitant]
     Active Substance: MINERAL OIL
     Indication: Product used for unknown indication
     Dosage: PLACE ENEMA ONCE
     Route: 054
     Dates: start: 20220228
  53. MIRTAZAPINE [Concomitant]
     Active Substance: MIRTAZAPINE
     Indication: Product used for unknown indication
     Dosage: 7.5 MG, BEDTIME
     Route: 048
     Dates: start: 20220417
  54. MIRTAZAPINE [Concomitant]
     Active Substance: MIRTAZAPINE
     Dosage: 15 MG, BEDTIME
     Route: 048
     Dates: start: 20220418
  55. PHENYLEPHRINE [Concomitant]
     Active Substance: PHENYLEPHRINE HYDROCHLORIDE
     Indication: Product used for unknown indication
     Dosage: APPLY OINTMENT FOUR TIMES DAILY, QID
     Route: 054
     Dates: start: 20220227, end: 20220308
  56. POLYETHYLENE GLYCOLS [Concomitant]
     Active Substance: POLYETHYLENE GLYCOLS
     Indication: Product used for unknown indication
     Dosage: 17G DAILY
     Route: 048
     Dates: start: 20220308, end: 20220721
  57. PYRIDOXINE [Concomitant]
     Active Substance: PYRIDOXINE
     Indication: Product used for unknown indication
     Dosage: 50 MG DAILY
     Route: 048
     Dates: start: 20220301, end: 20220622
  58. PYRIDOXINE [Concomitant]
     Active Substance: PYRIDOXINE
     Dosage: 100 MG DAILY
     Route: 048
     Dates: start: 20220623, end: 20220721
  59. SENNOSIDES A AND B [Concomitant]
     Active Substance: SENNOSIDES A AND B
     Indication: Product used for unknown indication
     Dosage: 17.2 MG, BEDTIME
     Route: 048
     Dates: start: 20220309, end: 20220321
  60. SENNOSIDES A AND B [Concomitant]
     Active Substance: SENNOSIDES A AND B
     Dosage: 17.2 MG, BEDTIME
     Route: 048
     Dates: start: 20220329, end: 20220721
  61. VANCOMYCIN [Concomitant]
     Active Substance: VANCOMYCIN
     Indication: Product used for unknown indication
     Dosage: 1250 MG, SINGLE
     Route: 042
     Dates: start: 20220512
  62. VANCOMYCIN [Concomitant]
     Active Substance: VANCOMYCIN
     Dosage: 1000 MG EVERY 18 HOURS
     Route: 042
     Dates: start: 20220513
  63. WARFARIN [Concomitant]
     Active Substance: WARFARIN
     Indication: Product used for unknown indication
     Dosage: 1-9 MG
     Route: 048
     Dates: start: 20220606, end: 20220721
  64. IOPAMIDOL [Concomitant]
     Active Substance: IOPAMIDOL
     Indication: Product used for unknown indication
     Dosage: 100 ML, SINGLE
     Route: 042
     Dates: start: 20220325
  65. IOPAMIDOL [Concomitant]
     Active Substance: IOPAMIDOL
     Dosage: 100 ML, SINGLE
     Route: 042
     Dates: start: 20220511
  66. DEXTROSE\SODIUM CHLORIDE [Concomitant]
     Active Substance: DEXTROSE\SODIUM CHLORIDE
     Indication: Product used for unknown indication
     Dosage: 100 ML/H
     Route: 042
     Dates: start: 20220418
  67. ACETAMINOPHEN [Concomitant]
     Active Substance: ACETAMINOPHEN
     Indication: Product used for unknown indication
     Dosage: 650 MG, AS NEEDED (650 MG EVERY 6 HOURS AS NEEDED)
     Route: 048
     Dates: start: 20220306, end: 20220604
  68. ACETAMINOPHEN [Concomitant]
     Active Substance: ACETAMINOPHEN
     Dosage: 650 MG, AS NEEDED (650 MG EVERY 6 HOURS AS NEEDED)
     Route: 048
     Dates: start: 20220606, end: 20220721
  69. LIDOCAINE [Concomitant]
     Active Substance: LIDOCAINE
     Indication: Product used for unknown indication
     Dosage: APPLY ORAL SOLUTION EVERY 4 HOURS AS NEEDED
     Route: 048
     Dates: start: 20220321, end: 20220721
  70. ALUMINUM, MAGNESIUM,SIMETHICONE [Concomitant]
     Indication: Product used for unknown indication
     Dosage: 600 ? 600 ? 60 MG EVERY 4 HOURS AS NEEDED
     Route: 048
     Dates: start: 20220321, end: 20220721
  71. BENZOCAINE-MENTHOL [Concomitant]
     Indication: Product used for unknown indication
     Dosage: 15 ? 3.6 MG LOZENGE EVERY 2 HOURS AS NEEDED
     Route: 002
     Dates: start: 20220305, end: 20220603
  72. BENZONATATE [Concomitant]
     Active Substance: BENZONATATE
     Indication: Product used for unknown indication
     Dosage: 100 MG TWO TIMES DAILY AS NEEDED
     Route: 048
     Dates: start: 20220407, end: 20220721
  73. DEXTROMETHORPHAN [Concomitant]
     Active Substance: DEXTROMETHORPHAN
     Indication: Product used for unknown indication
     Dosage: 30 MG, AS NEEDED
     Route: 048
     Dates: start: 20220407, end: 20220721
  74. SIMETHICONE (DIMETHICONE) [Concomitant]
     Active Substance: DIMETHICONE
     Indication: Product used for unknown indication
     Dosage: 80 MG, AS NEEDED (80 MG FOUR TIMES DAILY AS NEEDED)
     Route: 048
     Dates: start: 20220316, end: 20220614
  75. SODIUM CHLORIDE [Concomitant]
     Active Substance: SODIUM CHLORIDE
     Indication: Product used for unknown indication
     Dosage: SPRAY INTRANASALLY AS NEEDED
     Route: 045
     Dates: start: 20220416, end: 20220715
  76. METOPROLOL TARTRATE [Concomitant]
     Active Substance: METOPROLOL TARTRATE
     Indication: Product used for unknown indication
     Dosage: 2.5 MG EVERY 6 HOURS AS NEEDED
     Route: 042
     Dates: start: 20220308, end: 20220329

REACTIONS (1)
  - Drug interaction [Unknown]
